FAERS Safety Report 7942134-0 (Version None)
Quarter: 2011Q4

REPORT INFORMATION
  Report Type: 
  Country: None (occurrence: None)
  Receive Date: 20111114
  Receipt Date: 20110616
  Transmission Date: 20120403
  Serious: Yes (Hospitalization)
  Sender: FDA-Public Use
  Company Number: 2011028957

PATIENT
  Age: 14 Year
  Sex: Male
  Weight: 70.7611 kg

DRUGS (4)
  1. ALBUTEROL [Concomitant]
  2. HIZENTRA [Suspect]
     Indication: HYPOGLOBULINAEMIA
     Dosage: (10 G 1X/WEEK, 2 GM 10 ML VIAL; 50 ML IN 4 SITES OVER 1 HOUR  SUBCUTANEOUS) (SUBCUTANEOUS)
     Route: 058
     Dates: start: 20110527
  3. HIZENTRA [Suspect]
     Indication: HYPOGLOBULINAEMIA
     Dosage: (10 G 1X/WEEK, 2 GM 10 ML VIAL; 50 ML IN 4 SITES OVER 1 HOUR  SUBCUTANEOUS) (SUBCUTANEOUS)
     Route: 058
     Dates: start: 20110614
  4. SINGULAIR [Concomitant]

REACTIONS (7)
  - MIGRAINE [None]
  - VOMITING [None]
  - INFUSION SITE PARAESTHESIA [None]
  - NAUSEA [None]
  - PYREXIA [None]
  - GASTROINTESTINAL PAIN [None]
  - HEADACHE [None]
